FAERS Safety Report 9399698 (Version 2)
Quarter: 2014Q1

REPORT INFORMATION
  Report Type: Spontaneous
  Country: BR (occurrence: None)
  Receive Date: 20130710
  Receipt Date: 20140227
  Transmission Date: 20141002
  Serious: Yes (Hospitalization)
  Sender: FDA-Public Use
  Company Number: VAL_02625_2013

PATIENT
  Sex: Female

DRUGS (5)
  1. PARLODEL [Suspect]
     Indication: PRODUCT USED FOR UNKNOWN INDICATION
  2. SANDOSTATIN [Suspect]
     Indication: ACROMEGALY
     Dosage: 1X/MONTH
     Dates: end: 201104
  3. METICORTEN [Concomitant]
  4. LEVOTHYROXINE [Concomitant]
  5. PREDNISONE [Concomitant]

REACTIONS (10)
  - Hypothyroidism [None]
  - Weight increased [None]
  - Abdominal pain [None]
  - Headache [None]
  - Thyroid neoplasm [None]
  - Choking [None]
  - Gait disturbance [None]
  - Femur fracture [None]
  - Fall [None]
  - Activities of daily living impaired [None]
